FAERS Safety Report 7469114-6 (Version None)
Quarter: 2011Q2

REPORT INFORMATION
  Report Type: 
  Country: None (occurrence: None)
  Receive Date: 20110510
  Receipt Date: 20110427
  Transmission Date: 20111010
  Serious: Yes (Other)
  Sender: FDA-Public Use
  Company Number: JP-ELI_LILLY_AND_COMPANY-JP201104004887

PATIENT
  Age: 58 Year
  Sex: Male

DRUGS (4)
  1. ZYPREXA [Suspect]
     Dosage: 2.5 MG, UNK
     Route: 048
  2. PARIET [Concomitant]
     Indication: REFLUX OESOPHAGITIS
     Dosage: 10 MG, UNK
     Route: 048
  3. MUCOSTA [Concomitant]
     Indication: GASTRIC ULCER
     Dosage: 300 MG, UNK
     Route: 048
  4. LOXONIN [Concomitant]
     Indication: UPPER RESPIRATORY TRACT INFLAMMATION
     Dosage: 180 MG, UNK
     Route: 048

REACTIONS (1)
  - HYPOGLYCAEMIA [None]
